FAERS Safety Report 18413459 (Version 1)
Quarter: 2020Q4

REPORT INFORMATION
  Report Type: Spontaneous
  Country: US (occurrence: US)
  Receive Date: 20201022
  Receipt Date: 20201022
  Transmission Date: 20210114
  Serious: Yes (Life-Threatening, Hospitalization, Other)
  Sender: FDA-Public Use
  Company Number: US-LUPIN PHARMACEUTICALS INC.-2020-07680

PATIENT
  Age: 28 Year
  Sex: Female

DRUGS (8)
  1. OXACILLIN [Suspect]
     Active Substance: OXACILLIN SODIUM
     Indication: STAPHYLOCOCCAL BACTERAEMIA
     Dosage: UNK
     Route: 042
  2. VANCOMYCIN [Suspect]
     Active Substance: VANCOMYCIN
     Indication: STAPHYLOCOCCAL BACTERAEMIA
     Dosage: UNK
     Route: 013
  3. OXACILLIN [Suspect]
     Active Substance: OXACILLIN SODIUM
     Indication: ENDOCARDITIS STAPHYLOCOCCAL
  4. OXACILLIN [Suspect]
     Active Substance: OXACILLIN SODIUM
     Indication: ARTHRITIS BACTERIAL
  5. HEPARIN [Suspect]
     Active Substance: HEPARIN SODIUM
     Indication: ANTICOAGULANT THERAPY
     Dosage: INFUSION
     Route: 065
  6. VANCOMYCIN [Suspect]
     Active Substance: VANCOMYCIN
     Indication: ARTHRITIS BACTERIAL
  7. VANCOMYCIN [Suspect]
     Active Substance: VANCOMYCIN
     Indication: ENDOCARDITIS STAPHYLOCOCCAL
  8. METHADONE [Suspect]
     Active Substance: METHADONE HYDROCHLORIDE
     Indication: PRODUCT USED FOR UNKNOWN INDICATION
     Dosage: UNK
     Route: 065

REACTIONS (3)
  - Maternal exposure during pregnancy [Unknown]
  - Drug ineffective [Unknown]
  - Premature delivery [Unknown]
